FAERS Safety Report 11081948 (Version 2)
Quarter: 2015Q2

REPORT INFORMATION
  Report Type: Report from Study
  Country: US (occurrence: US)
  Receive Date: 20150501
  Receipt Date: 20150527
  Transmission Date: 20150821
  Serious: Yes (Death, Other)
  Sender: FDA-Public Use
  Company Number: US-CELGENE-USA-2014112277

PATIENT
  Age: 59 Year
  Sex: Female
  Weight: 54.48 kg

DRUGS (13)
  1. ABRAXANE [Suspect]
     Active Substance: PACLITAXEL
     Indication: PANCREATIC CARCINOMA
     Route: 041
     Dates: start: 20140129
  2. ATIVAN [Concomitant]
     Active Substance: LORAZEPAM
     Indication: ANXIETY
     Dosage: 12 MILLIGRAM
     Route: 048
     Dates: start: 20140131, end: 2015
  3. GEMCITABINE [Suspect]
     Active Substance: GEMCITABINE\GEMCITABINE HYDROCHLORIDE
     Indication: PRODUCT USED FOR UNKNOWN INDICATION
     Dosage: 1000 MILLIGRAM/SQ. METER
     Route: 065
     Dates: start: 20140129, end: 20140801
  4. SENNA [Concomitant]
     Active Substance: SENNA LEAF\SENNOSIDES\SENNOSIDES A AND B
     Indication: CONSTIPATION
     Route: 065
  5. CALTRATE [Concomitant]
     Active Substance: CALCIUM CARBONATE
     Indication: PRODUCT USED FOR UNKNOWN INDICATION
     Route: 065
  6. PEGPH20 [Suspect]
     Active Substance: HYALURONIDASE RECOMBINANT HUMAN
     Indication: PRODUCT USED FOR UNKNOWN INDICATION
     Dosage: 3 MICROGRAM/KILOGRAM
     Route: 065
     Dates: start: 20140128, end: 20140801
  7. ZOFRAN [Concomitant]
     Active Substance: ONDANSETRON HYDROCHLORIDE
     Indication: NAUSEA
     Dosage: 600 MILLIGRAM
     Route: 048
     Dates: start: 20140131
  8. ABRAXANE [Suspect]
     Active Substance: PACLITAXEL
     Route: 041
     Dates: start: 201407, end: 20140801
  9. ABRAXANE [Suspect]
     Active Substance: PACLITAXEL
     Dosage: 3 DROPS
     Route: 041
     Dates: start: 20140825, end: 20141103
  10. MULTIVITAMINS [Concomitant]
     Active Substance: VITAMINS
     Indication: PRODUCT USED FOR UNKNOWN INDICATION
     Route: 065
  11. VAGIFEM [Concomitant]
     Active Substance: ESTRADIOL
     Indication: PRODUCT USED FOR UNKNOWN INDICATION
     Dosage: 8.6 MILLIGRAM
     Route: 065
  12. TRAMADOL [Concomitant]
     Active Substance: TRAMADOL
     Indication: PRODUCT USED FOR UNKNOWN INDICATION
     Dosage: 1 MILLIGRAM
     Route: 048
  13. DEXAMETHASONE. [Concomitant]
     Active Substance: DEXAMETHASONE
     Indication: PRODUCT USED FOR UNKNOWN INDICATION
     Dosage: 25 MILLIGRAM
     Route: 065
     Dates: start: 20140331

REACTIONS (2)
  - Pancreatic carcinoma [Fatal]
  - Macular oedema [Not Recovered/Not Resolved]

NARRATIVE: CASE EVENT DATE: 20140701
